FAERS Safety Report 6976542-1 (Version None)
Quarter: 2010Q3

REPORT INFORMATION
  Report Type: 
  Country: None (occurrence: None)
  Receive Date: 20100910
  Receipt Date: 20100831
  Transmission Date: 20110219
  Serious: No
  Sender: FDA-Public Use
  Company Number: US-PFIZER INC-2010110077

PATIENT
  Sex: Male
  Weight: 95.238 kg

DRUGS (3)
  1. VIAGRA [Suspect]
     Indication: ERECTILE DYSFUNCTION
     Dosage: 100 MG, AS NEEDED
     Route: 048
     Dates: start: 20091201
  2. VALSARTAN [Concomitant]
     Indication: HYPERTENSION
     Dosage: UNK
  3. CRESTOR [Concomitant]
     Indication: BLOOD CHOLESTEROL INCREASED
     Dosage: UNK

REACTIONS (3)
  - DRUG INEFFECTIVE [None]
  - FATIGUE [None]
  - NASAL CONGESTION [None]
